APPROVED DRUG PRODUCT: ROPIVACAINE HYDROCHLORIDE
Active Ingredient: ROPIVACAINE HYDROCHLORIDE
Strength: 200MG/100ML (2MG/ML)
Dosage Form/Route: SOLUTION;INJECTION
Application: A205612 | Product #002 | TE Code: AP
Applicant: EUGIA PHARMA SPECIALITIES LTD
Approved: Jul 13, 2016 | RLD: No | RS: No | Type: RX